FAERS Safety Report 18335773 (Version 1)
Quarter: 2020Q4

REPORT INFORMATION
  Report Type: Spontaneous
  Country: IT (occurrence: IT)
  Receive Date: 20201001
  Receipt Date: 20201001
  Transmission Date: 20210113
  Serious: No
  Sender: FDA-Public Use
  Company Number: IT-LUPIN PHARMACEUTICALS INC.-2020-05578

PATIENT
  Age: 37 Year
  Sex: Female

DRUGS (2)
  1. METRONIDAZOLE. [Suspect]
     Active Substance: METRONIDAZOLE
     Indication: BACTERIAL VAGINOSIS
     Dosage: 2 GRAM, SINGLE, (2G IN SINGLE DOSE)
     Route: 048
  2. TINIDAZOLE. [Suspect]
     Active Substance: TINIDAZOLE
     Indication: TRICHOMONIASIS
     Dosage: 500 MILLIGRAM, QID
     Route: 048

REACTIONS (2)
  - Therapeutic response unexpected [Unknown]
  - Drug ineffective [Unknown]
